FAERS Safety Report 5024703-3 (Version None)
Quarter: 2006Q2

REPORT INFORMATION
  Report Type: 
  Country: None (occurrence: None)
  Receive Date: 20060427
  Receipt Date: 20050602
  Transmission Date: 20061013
  Serious: Yes (Other)
  Sender: FDA-Public Use
  Company Number: US-JNJFOC-20050302497

PATIENT
  Age: 77 Year
  Sex: Male

DRUGS (1)
  1. GALANTAMINE HYDROBROMIDE [Suspect]
     Indication: DEMENTIA ALZHEIMER'S TYPE
     Dosage: 4 MG, 2 IN 1 DAY, ORAL
     Route: 048
     Dates: start: 20041218

REACTIONS (2)
  - CEREBROVASCULAR ACCIDENT [None]
  - TRANSIENT ISCHAEMIC ATTACK [None]
